FAERS Safety Report 6176750-6 (Version None)
Quarter: 2009Q2

REPORT INFORMATION
  Report Type: 
  Country: None (occurrence: None)
  Receive Date: 20090501
  Receipt Date: 20080605
  Transmission Date: 20091009
  Serious: Yes (Hospitalization)
  Sender: FDA-Public Use
  Company Number: US-ALEXION-A200800008

PATIENT

DRUGS (19)
  1. SOLIRIS [Suspect]
     Indication: PAROXYSMAL NOCTURNAL HAEMOGLOBINURIA
     Dosage: 600 MG, SINGLE
     Route: 042
     Dates: start: 20071116, end: 20071116
  2. SOLIRIS [Suspect]
     Dosage: 600 MG, SINGLE
     Route: 042
     Dates: start: 20071123, end: 20071123
  3. SOLIRIS [Suspect]
     Dosage: 600 MG, SINGLE
     Route: 042
     Dates: start: 20071130, end: 20071130
  4. SOLIRIS [Suspect]
     Dosage: 600 MG, SINGLE
     Route: 042
     Dates: start: 20071207, end: 20071207
  5. SOLIRIS [Suspect]
     Dosage: 900 MG, SINGLE
     Route: 042
     Dates: start: 20071214, end: 20071214
  6. SOLIRIS [Suspect]
     Dosage: 900 MG, SINGLE
     Route: 042
     Dates: start: 20071228, end: 20071228
  7. SOLIRIS [Suspect]
     Dosage: 900 MG, SINGLE
     Route: 042
     Dates: start: 20080109, end: 20080109
  8. SOLIRIS [Suspect]
     Dosage: 900 MG, SINGLE
     Route: 042
     Dates: start: 20080123, end: 20080123
  9. SOLIRIS [Suspect]
     Dosage: 900 MG, SINGLE
     Route: 042
     Dates: start: 20080206, end: 20080206
  10. SOLIRIS [Suspect]
     Dosage: 900 MG, SINGLE
     Route: 042
     Dates: start: 20080220, end: 20080202
  11. SOLIRIS [Suspect]
     Dosage: 900 MG, SINGLE
     Route: 042
     Dates: start: 20080305, end: 20080305
  12. SOLIRIS [Suspect]
     Dosage: 900 MG, SINGLE
     Route: 042
     Dates: start: 20080319, end: 20080319
  13. SOLIRIS [Suspect]
     Dosage: 900 MG, SINGLE
     Route: 042
     Dates: start: 20080402, end: 20080402
  14. FERROUS GLUCONATE [Concomitant]
     Dosage: 324 MG, TID
  15. WARFARIN SODIUM [Concomitant]
     Indication: THROMBOSIS PROPHYLAXIS
     Dosage: 5 MG, QD
     Route: 048
  16. DOCUSATE SODIUM [Concomitant]
     Indication: CONSTIPATION PROPHYLAXIS
     Dosage: 100 MG, BID
     Route: 048
  17. PREVACID [Concomitant]
     Dosage: 30 MG, QD
     Route: 048
  18. FOLIC ACID [Concomitant]
     Indication: PAROXYSMAL NOCTURNAL HAEMOGLOBINURIA
     Dosage: 1 MG, QD
     Route: 048
  19. PAROXETINE HCL [Concomitant]
     Dosage: 20 MG, QD
     Route: 048

REACTIONS (3)
  - CHOLELITHIASIS OBSTRUCTIVE [None]
  - HAEMOLYSIS [None]
  - NASOPHARYNGITIS [None]
